FAERS Safety Report 10387722 (Version 1)
Quarter: 2014Q3

REPORT INFORMATION
  Report Type: Spontaneous
  Country: US (occurrence: None)
  Receive Date: 20140814
  Receipt Date: 20140814
  Transmission Date: 20150326
  Serious: Yes (Other)
  Sender: FDA-Public Use
  Company Number: None

PATIENT
  Age: 58 Year
  Sex: Male
  Weight: 109.77 kg

DRUGS (1)
  1. INVOKANA [Suspect]
     Active Substance: CANAGLIFLOZIN
     Indication: TYPE 2 DIABETES MELLITUS
     Dosage: 1  ONCE DAILY TAKEN BY MOUTH
     Route: 048
     Dates: start: 20140702, end: 20140727

REACTIONS (7)
  - Blood glucose increased [None]
  - Joint swelling [None]
  - Peripheral swelling [None]
  - Joint effusion [None]
  - Arthralgia [None]
  - Fluid retention [None]
  - Pain in extremity [None]

NARRATIVE: CASE EVENT DATE: 20140729
